FAERS Safety Report 7943188-8 (Version None)
Quarter: 2011Q4

REPORT INFORMATION
  Report Type: 
  Country: None (occurrence: None)
  Receive Date: 20111128
  Receipt Date: 20111117
  Transmission Date: 20120403
  Serious: Yes (Other)
  Sender: FDA-Public Use
  Company Number: PHHY2011BR100759

PATIENT
  Sex: Female
  Weight: 75 kg

DRUGS (1)
  1. ESTRATEST [Suspect]
     Indication: HORMONE REPLACEMENT THERAPY
     Dosage: 125/25 MCG, 1 PATCH EVERY 4 DAYS
     Route: 062
     Dates: start: 20111111

REACTIONS (2)
  - VAGINAL HAEMORRHAGE [None]
  - WRONG TECHNIQUE IN DRUG USAGE PROCESS [None]
